FAERS Safety Report 15353458 (Version 1)
Quarter: 2018Q3

REPORT INFORMATION
  Report Type: Spontaneous
  Country: US (occurrence: US)
  Receive Date: 20180905
  Receipt Date: 20180905
  Transmission Date: 20181010
  Serious: Yes (Other)
  Sender: FDA-Public Use
  Company Number: US-PFIZER INC-2018357673

PATIENT
  Age: 38 Year
  Sex: Female
  Weight: 100 kg

DRUGS (1)
  1. TRANEXAMIC ACID. [Suspect]
     Active Substance: TRANEXAMIC ACID
     Indication: TUMOUR HAEMORRHAGE
     Dosage: 1300 MG, 3X/DAY FOR 5 DAYS
     Route: 048
     Dates: start: 20180829

REACTIONS (2)
  - Dysphagia [Unknown]
  - Choking [Unknown]

NARRATIVE: CASE EVENT DATE: 20180829
